FAERS Safety Report 6873459-8 (Version None)
Quarter: 2010Q3

REPORT INFORMATION
  Report Type: 
  Country: None (occurrence: None)
  Receive Date: 20100723
  Receipt Date: 20090109
  Transmission Date: 20110219
  Serious: Yes (Other)
  Sender: FDA-Public Use
  Company Number: US-PFIZER INC-2009154641

PATIENT
  Sex: Female
  Weight: 86.168 kg

DRUGS (9)
  1. CHANTIX [Suspect]
     Indication: SMOKING CESSATION THERAPY
     Dosage: 0.5 MG, 1X/DAY
     Route: 048
     Dates: start: 20081201
  2. TEGRETOL [Concomitant]
     Dosage: 200 MG, 2X/DAY
  3. PAXIL [Concomitant]
     Dosage: 40 MG, 1X/DAY
  4. MONTELUKAST SODIUM [Concomitant]
     Dosage: UNK
  5. ZOCOR [Concomitant]
     Dosage: UNK
  6. COMBIVENT [Concomitant]
     Dosage: UNK
  7. ALBUTEROL [Concomitant]
     Dosage: UNK
     Route: 055
  8. SPIRIVA [Concomitant]
     Dosage: UNK
  9. ALL OTHER THERAPEUTIC PRODUCTS [Concomitant]
     Dosage: UNK

REACTIONS (8)
  - ANXIETY [None]
  - DYSPHONIA [None]
  - FRUSTRATION [None]
  - GLOSSODYNIA [None]
  - HEADACHE [None]
  - NERVOUSNESS [None]
  - SUICIDAL IDEATION [None]
  - TONGUE DRY [None]
